FAERS Safety Report 5264481-6 (Version None)
Quarter: 2007Q1

REPORT INFORMATION
  Report Type: 
  Country: None (occurrence: None)
  Receive Date: 20070309
  Receipt Date: 20070302
  Transmission Date: 20070707
  Serious: Yes (Other)
  Sender: FDA-Public Use
  Company Number: 2007309934

PATIENT
  Age: 37 Year
  Sex: Female
  Weight: 49.9 kg

DRUGS (3)
  1. ROGAINE [Suspect]
     Indication: ALOPECIA
     Dosage: 1 ML ONCE A DAY (1 ML, 1 IN 1 D), TOPICAL
     Route: 061
     Dates: start: 20050301, end: 20060101
  2. IBUPROFEN [Concomitant]
  3. TYLENOL [Concomitant]

REACTIONS (4)
  - DEHYDRATION [None]
  - HEADACHE [None]
  - HEART RATE INCREASED [None]
  - HOT FLUSH [None]
